FAERS Safety Report 9114389 (Version 2)
Quarter: 2013Q1

REPORT INFORMATION
  Report Type: Spontaneous
  Country: US (occurrence: US)
  Receive Date: 20130209
  Receipt Date: 20130322
  Transmission Date: 20140127
  Serious: Yes (Death, Hospitalization)
  Sender: FDA-Public Use
  Company Number: US-B.I. PHARMACEUTICALS,INC./RIDGEFIELD-2013-BI-03262BP

PATIENT
  Age: 84 Year
  Sex: Female
  Weight: 50.8 kg

DRUGS (9)
  1. PRADAXA [Suspect]
     Indication: ATRIAL FLUTTER
     Dosage: 300 MG
     Route: 048
     Dates: end: 201301
  2. PRADAXA [Suspect]
     Indication: ATRIAL FIBRILLATION
  3. CRESTOR [Concomitant]
     Indication: DYSLIPIDAEMIA
     Dosage: 20 MG
     Route: 048
  4. CRESTOR [Concomitant]
     Indication: LIPIDS INCREASED
  5. ASPIRIN [Concomitant]
     Indication: CORONARY ARTERY DISEASE
     Dosage: 81 MG
     Route: 048
  6. DIGOXIN [Concomitant]
     Indication: ATRIAL FLUTTER
     Dosage: 0.125 MG
     Route: 048
  7. METOPROLOL SUCCINATE [Concomitant]
     Indication: ATRIAL FLUTTER
     Dosage: 200 MG
     Route: 048
  8. METOPROLOL SUCCINATE [Concomitant]
     Indication: CORONARY ARTERY DISEASE
  9. BONIVA [Concomitant]
     Indication: OSTEOPOROSIS
     Dosage: 5 MG
     Route: 048

REACTIONS (3)
  - Myocardial infarction [Fatal]
  - Post procedural haemorrhage [Fatal]
  - Off label use [Unknown]
